FAERS Safety Report 5454948-X (Version None)
Quarter: 2007Q3

REPORT INFORMATION
  Report Type: 
  Country: None (occurrence: None)
  Receive Date: 20070917
  Receipt Date: 20070905
  Transmission Date: 20080115
  Serious: Yes (Other)
  Sender: FDA-Public Use
  Company Number: US-PFIZER INC-2007075253

PATIENT
  Sex: Female
  Weight: 113.63 kg

DRUGS (11)
  1. LYRICA [Suspect]
     Indication: PAIN IN EXTREMITY
  2. PRAMIPEXOLE DIHYDROCHLORIDE [Concomitant]
  3. TENIDAP SODIUM [Concomitant]
  4. VALSARTAN [Concomitant]
  5. METFORMIN HCL [Concomitant]
  6. AVANDIA [Concomitant]
     Indication: DIABETES MELLITUS
  7. LOVASTATIN [Concomitant]
  8. VICODIN [Concomitant]
  9. CARISOPRODOL [Concomitant]
  10. CIPROFLOXACIN [Concomitant]
  11. ASPIRIN [Concomitant]

REACTIONS (2)
  - ACTIVITIES OF DAILY LIVING IMPAIRED [None]
  - DIZZINESS [None]
